FAERS Safety Report 9288835 (Version 5)
Quarter: 2013Q3

REPORT INFORMATION
  Report Type: Report from Study
  Country: FR (occurrence: FR)
  Receive Date: 20130514
  Receipt Date: 20130827
  Transmission Date: 20140515
  Serious: Yes (Hospitalization)
  Sender: FDA-Public Use
  Company Number: FR-TEVA-398029USA

PATIENT
  Age: 72 Year
  Sex: Female
  Weight: 58 kg

DRUGS (33)
  1. LEVACT [Suspect]
     Indication: MANTLE CELL LYMPHOMA
     Dosage: CYCLE 1
     Route: 042
     Dates: start: 20120614
  2. LEVACT [Suspect]
     Dosage: CYCLE 2
     Route: 042
  3. LEVACT [Suspect]
     Dosage: CYCLE 3
     Route: 042
     Dates: start: 20120817
  4. LEVACT [Suspect]
     Dosage: CYCLE 4
     Route: 042
     Dates: start: 20120924
  5. LEVACT [Suspect]
     Dosage: CYCLE 5
     Route: 042
  6. LEVACT [Suspect]
     Dosage: CYCLE 6
     Route: 042
     Dates: end: 20121206
  7. MABTHERA [Suspect]
     Indication: MANTLE CELL LYMPHOMA
     Dosage: CYCLE 1
     Route: 042
     Dates: start: 20120614
  8. MABTHERA [Suspect]
     Dosage: CYCLE 2
     Route: 042
  9. MABTHERA [Suspect]
     Dosage: CYCLE 3
     Route: 042
     Dates: start: 20120807
  10. MABTHERA [Suspect]
     Dosage: CYCLE 4
     Route: 042
     Dates: start: 20120924
  11. MABTHERA [Suspect]
     Dosage: CYCLE 5
     Route: 042
  12. MABTHERA [Suspect]
     Dosage: CYCLE 6
     Route: 042
  13. VELCADE [Suspect]
     Indication: MANTLE CELL LYMPHOMA
     Dosage: CYCLE 1
     Route: 058
     Dates: start: 20120614
  14. VELCADE [Suspect]
     Dosage: CYCLE 2
     Route: 058
  15. VELCADE [Suspect]
     Dosage: CYCLE 3
     Route: 058
     Dates: start: 20120817
  16. VELCADE [Suspect]
     Dosage: CYCLE 4
     Route: 058
     Dates: start: 20120924
  17. VELCADE [Suspect]
     Dosage: CYCLE 5
     Route: 058
  18. VELCADE [Suspect]
     Dosage: CYCLE 6
     Route: 058
  19. DEXAMETHASONE [Suspect]
     Indication: MANTLE CELL LYMPHOMA
     Dosage: CYCLE 1
     Route: 048
     Dates: start: 20120614
  20. DEXAMETHASONE [Suspect]
     Dosage: CYCLE 2
     Route: 048
  21. DEXAMETHASONE [Suspect]
     Dosage: CYCLE 3
     Route: 048
     Dates: start: 20120817
  22. DEXAMETHASONE [Suspect]
     Dosage: CYCLE 4
     Route: 048
     Dates: start: 20120924
  23. DEXAMETHASONE [Suspect]
     Dosage: CYCLE 5
     Route: 048
  24. DEXAMETHASONE [Suspect]
     Dosage: CYCLE 6
     Route: 048
  25. HEMIGOXINE [Concomitant]
     Route: 048
     Dates: start: 20130319
  26. IPRATROPIUM [Concomitant]
     Dosage: DAILY
     Dates: start: 20130318
  27. TRIFLUCAN [Concomitant]
     Dosage: DAILY
     Route: 042
     Dates: start: 20130318
  28. BISOPROLOL [Concomitant]
     Dosage: DAILY
     Route: 048
     Dates: start: 20130318
  29. ESOMEPRAZOLE [Concomitant]
     Dosage: DAILY
     Route: 048
     Dates: start: 20130318
  30. DIFFU K [Concomitant]
     Dosage: DAILY
     Route: 048
     Dates: start: 2007
  31. SPIRONOLACTONE [Concomitant]
     Indication: ANTIFUNGAL PROPHYLAXIS
     Dosage: DAILY
     Route: 048
     Dates: start: 20120618
  32. INSULIN [Concomitant]
     Indication: ANTIVIRAL PROPHYLAXIS
     Route: 058
     Dates: start: 20130319
  33. ZOPICLONE [Concomitant]
     Indication: INSOMNIA
     Route: 048
     Dates: start: 20130319

REACTIONS (5)
  - Febrile bone marrow aplasia [Recovered/Resolved]
  - Candida sepsis [Recovered/Resolved]
  - Acute respiratory failure [Recovered/Resolved]
  - Arrhythmia [Recovered/Resolved]
  - Atrial fibrillation [Recovered/Resolved]
